FAERS Safety Report 6364017-2 (Version None)
Quarter: 2009Q3

REPORT INFORMATION
  Report Type: 
  Country: None (occurrence: None)
  Receive Date: 20090919
  Receipt Date: 20090713
  Transmission Date: 20100115
  Serious: No
  Sender: FDA-Public Use
  Company Number: US-ABBOTT-09P-163-0585512-00

PATIENT
  Weight: 113.5 kg

DRUGS (9)
  1. HUMIRA [Suspect]
     Indication: PSORIATIC ARTHROPATHY
     Route: 058
     Dates: start: 20090401
  2. HUMIRA [Suspect]
     Indication: PSORIASIS
  3. GLUCOPHAGE [Concomitant]
     Indication: DRUG USE FOR UNKNOWN INDICATION
  4. ACTOS [Concomitant]
     Indication: DRUG USE FOR UNKNOWN INDICATION
  5. ZOCOR [Concomitant]
     Indication: DRUG USE FOR UNKNOWN INDICATION
  6. COZAAR [Concomitant]
     Indication: DRUG USE FOR UNKNOWN INDICATION
  7. CELEBREX [Concomitant]
     Indication: DRUG USE FOR UNKNOWN INDICATION
  8. NEXIUM [Concomitant]
     Indication: DRUG USE FOR UNKNOWN INDICATION
  9. LEXAPRO [Concomitant]
     Indication: DRUG USE FOR UNKNOWN INDICATION

REACTIONS (1)
  - DRUG DOSE OMISSION [None]
